FAERS Safety Report 8874873 (Version 1)
Quarter: 2012Q4

REPORT INFORMATION
  Report Type: 
  Country: US (occurrence: US)
  Receive Date: 20121026
  Receipt Date: 20121026
  Transmission Date: 20130627
  Serious: No
  Sender: FDA-Public Use
  Company Number: US-AMGEN-USASP2012042491

PATIENT
  Age: 62 Year
  Sex: Female
  Weight: 102.99 kg

DRUGS (6)
  1. ENBREL [Suspect]
     Indication: PRODUCT USED FOR UNKNOWN INDICATION
     Dosage: 50 mg, qwk
     Route: 058
  2. CELEBREX [Concomitant]
     Dosage: 200 mg, UNK
  3. LEFLUNOMIDE [Concomitant]
     Dosage: 10 mg, UNK
  4. FOLIC ACID [Concomitant]
     Dosage: 01 mg, UNK
  5. MULTIVITAMIN                       /00097801/ [Concomitant]
     Dosage: UNK
  6. CALCIUM [Concomitant]
     Dosage: 500 UNK, UNK

REACTIONS (3)
  - Psoriasis [Recovered/Resolved]
  - Ear infection [Recovered/Resolved]
  - Eye infection [Recovered/Resolved]
